FAERS Safety Report 9306258 (Version 1)
Quarter: 2013Q2

REPORT INFORMATION
  Report Type: Spontaneous
  Country: US (occurrence: US)
  Receive Date: 20130523
  Receipt Date: 20130523
  Transmission Date: 20140414
  Serious: Yes (Hospitalization, Other)
  Sender: FDA-Public Use
  Company Number: US-PFIZER INC-2013155779

PATIENT
  Age: 74 Year
  Sex: Female
  Weight: 63.49 kg

DRUGS (8)
  1. CELEBREX [Suspect]
     Indication: PAIN
     Dosage: 200 MG, 2X/DAY
     Dates: end: 201301
  2. CELEBREX [Suspect]
     Indication: RHEUMATOID ARTHRITIS
  3. CELEBREX [Suspect]
     Indication: ARTHRITIS
  4. PREDNISONE [Concomitant]
     Indication: INFLAMMATION
     Dosage: 1 MG, 3X/DAY
     Dates: start: 1993
  5. LISINOPRIL W/HYDROCHLOROTHIAZIDE [Concomitant]
     Indication: CARDIAC DISORDER
     Dosage: 20/12.5 MG, 1X/DAY
  6. FOLIC ACID [Concomitant]
     Indication: STOMATITIS
     Dosage: 1 MG, 2X/DAY
  7. ATENOLOL [Concomitant]
     Indication: BLOOD PRESSURE ABNORMAL
     Dosage: 50 MG, 1X/DAY
  8. TRAZODONE [Concomitant]
     Indication: SLEEP DISORDER
     Dosage: 50 MG, 1X/DAY

REACTIONS (7)
  - Influenza [Unknown]
  - Pneumonia [Unknown]
  - Myocardial infarction [Unknown]
  - Drug ineffective [Unknown]
  - Gait disturbance [Unknown]
  - Bone disorder [Unknown]
  - Feeling abnormal [Unknown]
